FAERS Safety Report 17428132 (Version 1)
Quarter: 2020Q1

REPORT INFORMATION
  Report Type: Spontaneous
  Country: FR (occurrence: FR)
  Receive Date: 20200217
  Receipt Date: 20200217
  Transmission Date: 20200409
  Serious: Yes (Hospitalization)
  Sender: FDA-Public Use
  Company Number: NVSC2020FR035567

PATIENT
  Age: 15 Year
  Sex: Male
  Weight: 63 kg

DRUGS (2)
  1. PARACETAMOL [Suspect]
     Active Substance: ACETAMINOPHEN
     Indication: TOXICITY TO VARIOUS AGENTS
     Dosage: UNK
     Route: 048
     Dates: start: 20191104, end: 20191104
  2. TRAMADOL. [Suspect]
     Active Substance: TRAMADOL
     Indication: TOXICITY TO VARIOUS AGENTS
     Dosage: 600 MG
     Route: 048
     Dates: start: 20191104, end: 20191104

REACTIONS (4)
  - Headache [Recovered/Resolved]
  - Abdominal pain upper [Recovered/Resolved]
  - Somnolence [Recovered/Resolved]
  - Nausea [Recovered/Resolved]

NARRATIVE: CASE EVENT DATE: 20191105
